FAERS Safety Report 21217413 (Version 1)
Quarter: 2022Q3

REPORT INFORMATION
  Report Type: Spontaneous
  Country: US (occurrence: US)
  Receive Date: 20220816
  Receipt Date: 20220816
  Transmission Date: 20221027
  Serious: No
  Sender: FDA-Public Use
  Company Number: US-PFIZER INC-202201057930

PATIENT
  Age: 56 Year
  Sex: Female
  Weight: 90 kg

DRUGS (7)
  1. PAXLOVID [Suspect]
     Active Substance: NIRMATRELVIR\RITONAVIR
     Indication: COVID-19 treatment
     Dosage: UNK, 2X/DAY (300 MG 100MG DOSE PACK)
     Dates: start: 20220811
  2. ESTRADIOL [Concomitant]
     Active Substance: ESTRADIOL
     Dosage: 0.075 MG (PATCH)
  3. PROPRANOLOL [Concomitant]
     Active Substance: PROPRANOLOL HYDROCHLORIDE
     Dosage: 20 MG, 2X/DAY
  4. PAROXETINE [Concomitant]
     Active Substance: PAROXETINE
     Dosage: 20 MG, 1X/DAY
  5. AJOVY [Concomitant]
     Active Substance: FREMANEZUMAB-VFRM
     Dosage: UNK, MONTHLY (ONCE A MONTH)
  6. GABAPENTIN [Concomitant]
     Active Substance: GABAPENTIN
     Dosage: 400 MG, 1X/DAY
  7. BENZONATATE [Concomitant]
     Active Substance: BENZONATATE
     Indication: Cough
     Dosage: 200 MG, 3X/DAY

REACTIONS (2)
  - Night sweats [Unknown]
  - Vomiting [Unknown]

NARRATIVE: CASE EVENT DATE: 20220811
